FAERS Safety Report 24386377 (Version 3)
Quarter: 2024Q4

REPORT INFORMATION
  Report Type: Spontaneous
  Country: JP (occurrence: JP)
  Receive Date: 20241001
  Receipt Date: 20241017
  Transmission Date: 20250115
  Serious: Yes (Other)
  Sender: TAKEDA
  Company Number: JP-TAKEDA-2024TUS095750

PATIENT
  Age: 7 Decade
  Sex: Female

DRUGS (1)
  1. FOSRENOL [Suspect]
     Active Substance: LANTHANUM CARBONATE
     Indication: Hyperphosphataemia
     Dosage: 75 MILLIGRAM, QD
     Route: 048
     Dates: start: 20240215, end: 20240502

REACTIONS (3)
  - Gastric mucosal lesion [Recovered/Resolved]
  - Anaemia [Recovered/Resolved]
  - Underdose [Unknown]

NARRATIVE: CASE EVENT DATE: 20240502
